FAERS Safety Report 4590575-4 (Version None)
Quarter: 2005Q1

REPORT INFORMATION
  Report Type: 
  Country: None (occurrence: None)
  Receive Date: 20050216
  Receipt Date: 20050131
  Transmission Date: 20050727
  Serious: Yes (Hospitalization, Disabling)
  Sender: FDA-Public Use
  Company Number: 601663

PATIENT
  Age: 84 Year
  Sex: Female
  Weight: 58.5 kg

DRUGS (6)
  1. GAMMAGARD S/D [Suspect]
     Indication: IMMUNODEFICIENCY COMMON VARIABLE
     Dosage: 2.5 GM; ONCE; INTRAVENOUS
     Route: 042
     Dates: start: 20021020, end: 20041020
  2. HYDROXYCHLOROQUINE SULFATE [Concomitant]
  3. SULINDAC [Concomitant]
  4. ADCAL-D3 [Concomitant]
  5. RISEDRONIC ACID [Concomitant]
  6. FUROSEMIDE [Concomitant]

REACTIONS (3)
  - CEREBROVASCULAR ACCIDENT [None]
  - HEMIPARESIS [None]
  - INFUSION RELATED REACTION [None]
